FAERS Safety Report 8998986 (Version 2)
Quarter: 2013Q1

REPORT INFORMATION
  Report Type: Spontaneous
  Country: US (occurrence: US)
  Receive Date: 20130103
  Receipt Date: 20130212
  Transmission Date: 20140127
  Serious: No
  Sender: FDA-Public Use
  Company Number: US-PFIZER INC-2012331410

PATIENT
  Sex: 0

DRUGS (3)
  1. ALDACTONE [Suspect]
     Dosage: 50 MG, 2X/DAY
  2. LIPITOR [Suspect]
     Dosage: UNK
  3. ACCUPRIL [Suspect]
     Dosage: UNK

REACTIONS (3)
  - Pyrexia [Unknown]
  - Confusional state [Unknown]
  - Panic attack [Unknown]
